FAERS Safety Report 8032093-7 (Version None)
Quarter: 2012Q1

REPORT INFORMATION
  Report Type: 
  Country: None (occurrence: None)
  Receive Date: 20120109
  Receipt Date: 20111229
  Transmission Date: 20120608
  Serious: Yes (Other)
  Sender: FDA-Public Use
  Company Number: US-ASTRAZENECA-2011SE77804

PATIENT
  Age: 60 Year
  Sex: Female

DRUGS (3)
  1. GEMFIBROZIL [Concomitant]
  2. CRESTOR [Suspect]
     Route: 048
  3. PREDNISONE TAB [Concomitant]

REACTIONS (4)
  - EYE DISORDER [None]
  - SARCOIDOSIS [None]
  - DIABETES MELLITUS [None]
  - VISUAL IMPAIRMENT [None]
